FAERS Safety Report 5650754-1 (Version None)
Quarter: 2008Q1

REPORT INFORMATION
  Report Type: 
  Country: None (occurrence: None)
  Receive Date: 20080305
  Receipt Date: 20080226
  Transmission Date: 20080703
  Serious: Yes (Hospitalization)
  Sender: FDA-Public Use
  Company Number: PHEH2008US02265

PATIENT
  Sex: Male

DRUGS (2)
  1. PLAVIX [Concomitant]
     Indication: HYPERTENSION
  2. ENABLEX [Suspect]
     Indication: HYPERTONIC BLADDER
     Dosage: 15 MG, QD
     Route: 048
     Dates: start: 20080131, end: 20080226

REACTIONS (3)
  - HEPATIC ENZYME INCREASED [None]
  - HEPATIC FAILURE [None]
  - HEPATITIS [None]
